FAERS Safety Report 8502511-6 (Version None)
Quarter: 2012Q3

REPORT INFORMATION
  Report Type: 
  Country: None (occurrence: None)
  Receive Date: 20120711
  Receipt Date: 20120702
  Transmission Date: 20120928
  Serious: Yes (Other)
  Sender: FDA-Public Use
  Company Number: US-ASTRAZENECA-2011SE68328

PATIENT
  Age: 85 Year
  Sex: Female

DRUGS (1)
  1. NEXIUM [Suspect]
     Route: 048

REACTIONS (5)
  - VISUAL IMPAIRMENT [None]
  - DRUG DOSE OMISSION [None]
  - AGE-RELATED MACULAR DEGENERATION [None]
  - MACULAR DEGENERATION [None]
  - GASTROOESOPHAGEAL REFLUX DISEASE [None]
